FAERS Safety Report 15481799 (Version 3)
Quarter: 2018Q4

REPORT INFORMATION
  Report Type: Report from Study
  Country: DE (occurrence: DE)
  Receive Date: 20181010
  Receipt Date: 20181017
  Transmission Date: 20190205
  Serious: Yes (Death, Other)
  Sender: FDA-Public Use
  Company Number: DE-BRISTOL-MYERS SQUIBB COMPANY-BMS-2017-076833

PATIENT
  Age: 66 Year
  Sex: Male

DRUGS (16)
  1. ALLOPURINOL. [Concomitant]
     Active Substance: ALLOPURINOL
     Indication: METABOLIC DISORDER
     Dosage: 300 MG, UNK
     Route: 065
  2. ASS 100 [Concomitant]
     Active Substance: ASPIRIN
     Indication: CEREBROVASCULAR DISORDER
     Dosage: 100 MG, UNK
     Route: 065
  3. APROVEL [Concomitant]
     Active Substance: IRBESARTAN
     Indication: CEREBROVASCULAR DISORDER
     Dosage: 300 MG, UNK
     Route: 065
  4. ASS 100 [Concomitant]
     Active Substance: ASPIRIN
     Indication: CARDIOVASCULAR DISORDER
     Route: 065
  5. BISOPROLOL 5/12.5 [Concomitant]
     Indication: CEREBROVASCULAR DISORDER
     Dosage: 1 DF, UNK
     Route: 065
  6. CELEBREX [Concomitant]
     Active Substance: CELECOXIB
     Indication: PROPHYLAXIS
     Dosage: 200 MG, UNK
     Route: 065
  7. NIVOLUMAB [Suspect]
     Active Substance: NIVOLUMAB
     Indication: NON-SMALL CELL LUNG CANCER
     Dosage: 3 MG/KG, Q2WK
     Route: 042
     Dates: start: 20160825, end: 20180111
  8. REPAGLINIDA [Concomitant]
     Active Substance: REPAGLINIDE
     Indication: METABOLIC DISORDER
     Dosage: 3 MG, UNK
     Route: 065
  9. ENALAPRIL [Concomitant]
     Active Substance: ENALAPRIL
     Indication: METABOLIC DISORDER
     Dosage: 20 MG, UNK
     Route: 065
  10. SIOFOR [Concomitant]
     Active Substance: METFORMIN HYDROCHLORIDE
     Indication: METABOLIC DISORDER
     Dosage: 2000 MG, UNK
     Route: 065
  11. APROVEL [Concomitant]
     Active Substance: IRBESARTAN
     Indication: CARDIOVASCULAR DISORDER
     Route: 065
  12. DEXAMETHASONE. [Concomitant]
     Active Substance: DEXAMETHASONE
     Indication: MALIGNANT NEOPLASM PROGRESSION
     Dosage: 2 MG, UNK
     Route: 065
     Dates: start: 20170822
  13. L-THYROX 100/150 [Concomitant]
     Indication: METABOLIC DISORDER
     Dosage: 1 DF, UNK
     Route: 065
  14. ZOCOR [Concomitant]
     Active Substance: SIMVASTATIN
     Indication: METABOLIC DISORDER
     Dosage: 40 MG, UNK
     Route: 065
  15. BISOPROLOL 5/12.5 [Concomitant]
     Indication: CARDIOVASCULAR DISORDER
     Route: 065
  16. DOXEPIN [Concomitant]
     Active Substance: DOXEPIN
     Indication: PRODUCT USED FOR UNKNOWN INDICATION
     Dosage: 50 MG, UNK
     Route: 065

REACTIONS (6)
  - Metastases to central nervous system [Recovered/Resolved]
  - Cough [Recovered/Resolved]
  - Fatigue [Recovered/Resolved]
  - Death [Fatal]
  - Malignant neoplasm progression [Not Recovered/Not Resolved]
  - Ataxia [Recovered/Resolved]

NARRATIVE: CASE EVENT DATE: 20170712
